FAERS Safety Report 15034603 (Version 1)
Quarter: 2018Q2

REPORT INFORMATION
  Report Type: Spontaneous
  Country: ES (occurrence: ES)
  Receive Date: 20180620
  Receipt Date: 20180620
  Transmission Date: 20180711
  Serious: Yes (Hospitalization, Other)
  Sender: FDA-Public Use
  Company Number: ES-ZYDUS-020604

PATIENT
  Age: 43 Year
  Sex: Female

DRUGS (3)
  1. METHADONE [Interacting]
     Active Substance: METHADONE HYDROCHLORIDE
     Indication: DRUG DETOXIFICATION
     Dosage: DOSE OF 15 MG WITH SUBSEQUENT GRADUAL WITHDRAWAL
     Route: 065
  2. ZOPICLONE [Concomitant]
     Active Substance: ZOPICLONE
     Indication: INSOMNIA
     Route: 065
  3. SERTRALINE [Suspect]
     Active Substance: SERTRALINE HYDROCHLORIDE
     Indication: DEPRESSIVE SYMPTOM
     Dosage: AN INCREASING DOSE OF 100 MG/DAY
     Route: 065

REACTIONS (12)
  - Protein total decreased [Recovered/Resolved]
  - Cyclothymic disorder [Recovered/Resolved]
  - Sexual activity increased [Recovered/Resolved]
  - Drug interaction [Unknown]
  - Insomnia [Recovered/Resolved]
  - Pressure of speech [Recovered/Resolved]
  - Dysphoria [Recovered/Resolved]
  - Mania [Recovered/Resolved]
  - Psychotic symptom [Recovered/Resolved]
  - Derailment [Recovered/Resolved]
  - Delusion [Recovered/Resolved]
  - Drug withdrawal syndrome [Recovered/Resolved]
